FAERS Safety Report 7315334-0 (Version None)
Quarter: 2011Q1

REPORT INFORMATION
  Report Type: 
  Country: None (occurrence: None)
  Receive Date: 20110225
  Receipt Date: 20110223
  Transmission Date: 20110831
  Serious: Yes (Death, Hospitalization)
  Sender: FDA-Public Use
  Company Number: US-B.I. PHARMACEUTICALS,INC./RIDGEFIELD-2010-BP-15350BP

PATIENT
  Sex: Female
  Weight: 66.68 kg

DRUGS (14)
  1. HYDROXYZINE [Concomitant]
  2. LORTAB [Concomitant]
  3. SYNTHROID [Concomitant]
     Dosage: 0.05 MG
  4. POTASSIUM [Concomitant]
     Dosage: 20 MEQ
  5. FOLIC ACID [Concomitant]
     Dosage: 1 MG
  6. LASIX [Concomitant]
     Dosage: 40 MG
  7. RAMIPRIL [Concomitant]
  8. PRADAXA [Suspect]
     Indication: ATRIAL FIBRILLATION
     Dosage: 300 MG
     Route: 048
     Dates: start: 20101122, end: 20101219
  9. OMEPRAZOLE [Concomitant]
     Dosage: 40 MG
  10. LOVASTATIN [Concomitant]
     Dosage: 20 MG
  11. TRAMADOL [Concomitant]
  12. PROAIR HFA [Concomitant]
  13. METOPROLOL SUCCINATE [Concomitant]
     Dosage: 100 MG
  14. FEXOFENADINE [Concomitant]

REACTIONS (1)
  - CEREBROVASCULAR ACCIDENT [None]
